FAERS Safety Report 21056551 (Version 1)
Quarter: 2022Q3

REPORT INFORMATION
  Report Type: Spontaneous
  Country: US (occurrence: US)
  Receive Date: 20220708
  Receipt Date: 20220708
  Transmission Date: 20221026
  Serious: No
  Sender: FDA-Public Use
  Company Number: US-ALLERGAN-2214292US

PATIENT

DRUGS (2)
  1. QULIPTA [Suspect]
     Active Substance: ATOGEPANT
     Indication: Migraine
     Dosage: 30 MG, QD
     Dates: start: 202201
  2. Johnson and Johnson [Concomitant]
     Indication: COVID-19 immunisation
     Dosage: UNK, SINGLE
     Dates: start: 202104, end: 202104

REACTIONS (4)
  - Inappropriate schedule of product administration [Unknown]
  - Constipation [Recovered/Resolved]
  - Nausea [Recovered/Resolved]
  - Therapeutic response decreased [Unknown]
